FAERS Safety Report 12785303 (Version 1)
Quarter: 2016Q3

REPORT INFORMATION
  Report Type: Spontaneous
  Country: GR (occurrence: GR)
  Receive Date: 20160927
  Receipt Date: 20160927
  Transmission Date: 20161109
  Serious: Yes (Death, Life-Threatening, Other)
  Sender: FDA-Public Use
  Company Number: GR-BAUSCH-BL-2016-023475

PATIENT
  Age: 41 Year
  Sex: Male

DRUGS (8)
  1. FUROSEMIDE. [Suspect]
     Active Substance: FUROSEMIDE
     Indication: MENINGITIS STREPTOCOCCAL
  2. HYDROCORTISONE. [Suspect]
     Active Substance: HYDROCORTISONE
     Indication: MENINGITIS STREPTOCOCCAL
     Route: 065
  3. CEFTRIAXONE. [Suspect]
     Active Substance: CEFTRIAXONE
     Indication: MENINGITIS STREPTOCOCCAL
     Dosage: 2 GR X 2
     Route: 065
  4. VANCOMYCIN [Suspect]
     Active Substance: VANCOMYCIN
     Indication: MENINGITIS STREPTOCOCCAL
     Dosage: 500MGX4
     Route: 065
  5. FLUDROCORTISONE [Concomitant]
     Active Substance: FLUDROCORTISONE
     Indication: SYSTEMIC LUPUS ERYTHEMATOSUS
  6. ACYCLOVIR. [Suspect]
     Active Substance: ACYCLOVIR
     Indication: MENINGITIS STREPTOCOCCAL
     Dosage: 250MG 2X3
     Route: 065
  7. MANNITOL. [Suspect]
     Active Substance: MANNITOL
     Indication: MENINGITIS STREPTOCOCCAL
     Route: 065
  8. EPINEPHRINE. [Suspect]
     Active Substance: EPINEPHRINE
     Indication: MENINGITIS STREPTOCOCCAL
     Route: 065

REACTIONS (2)
  - Multiple organ dysfunction syndrome [Fatal]
  - Drug ineffective [Fatal]
